FAERS Safety Report 8230766-4 (Version None)
Quarter: 2012Q1

REPORT INFORMATION
  Report Type: 
  Country: None (occurrence: None)
  Receive Date: 20120323
  Receipt Date: 20120319
  Transmission Date: 20120608
  Serious: Yes (Hospitalization)
  Sender: FDA-Public Use
  Company Number: US-BAYER-2012-027930

PATIENT
  Age: 40 Year
  Sex: Female
  Weight: 55.329 kg

DRUGS (2)
  1. NAPROXEN [Concomitant]
     Dosage: UNK UNK, PRN
     Route: 048
  2. YAZ [Suspect]
     Dosage: UNK
     Route: 048
     Dates: start: 20110803, end: 20111005

REACTIONS (6)
  - DYSPNOEA EXERTIONAL [None]
  - FATIGUE [None]
  - PAIN IN EXTREMITY [None]
  - DEEP VEIN THROMBOSIS [None]
  - CHEST PAIN [None]
  - PULMONARY EMBOLISM [None]
